FAERS Safety Report 8686792 (Version 2)
Quarter: 2013Q4

REPORT INFORMATION
  Report Type: Spontaneous
  Country: US (occurrence: US)
  Receive Date: 20120727
  Receipt Date: 20131031
  Transmission Date: 20140711
  Serious: No
  Sender: FDA-Public Use
  Company Number: US-009507513-2011SP040060

PATIENT
  Sex: Female
  Weight: 130 kg

DRUGS (13)
  1. IMPLANON [Suspect]
     Indication: CONTRACEPTION
     Dosage: 1 DF, UNK
     Route: 059
     Dates: start: 20110726, end: 20110809
  2. IMPLANON [Suspect]
     Dosage: 68 MG/3 YEAR
     Route: 059
     Dates: start: 20100628, end: 20101104
  3. DOCOSAHEXAENOIC ACID [Concomitant]
     Indication: PREGNANCY
     Dosage: 1 DF, QD
     Route: 048
     Dates: start: 20101104, end: 20110830
  4. MICRONOR 28 [Concomitant]
     Indication: CONTRACEPTION
     Dosage: 0.35 MG, QD
     Route: 048
     Dates: start: 20110401, end: 20110428
  5. COLACE [Concomitant]
     Indication: CONSTIPATION
     Dosage: 200 MG, QD
     Route: 048
     Dates: start: 20101221, end: 20110424
  6. PRENATE [Concomitant]
     Indication: PREGNANCY
     Route: 048
  7. INFLUENZA VIRUS VACCINE INACTIVATED (UNSPECIFIED) [Concomitant]
     Indication: IMMUNISATION
     Dosage: 1 DF, ONCE
     Route: 030
     Dates: start: 20110928, end: 20110928
  8. CLARITIN [Concomitant]
     Indication: HYPERSENSITIVITY
     Dosage: UNK
     Route: 048
     Dates: start: 20111128
  9. BENADRYL [Concomitant]
     Indication: HYPERSENSITIVITY
     Dosage: UNK
     Route: 048
     Dates: start: 20111128
  10. OMEGA-3 MARINE TRIGLYCERIDES [Concomitant]
     Route: 048
  11. VITAMIN D (UNSPECIFIED) [Concomitant]
     Indication: VITAMIN D DEFICIENCY
     Dosage: 4000 IU, QD
     Route: 048
  12. FERROUS SULFATE [Concomitant]
     Dosage: 325 MG, QD
     Route: 048
     Dates: start: 20101104, end: 20101223
  13. FERROUS SULFATE [Concomitant]
     Dosage: UNK

REACTIONS (2)
  - Pregnancy with implant contraceptive [Not Recovered/Not Resolved]
  - Pregnancy with implant contraceptive [Recovered/Resolved]
